FAERS Safety Report 5237994-0 (Version None)
Quarter: 2007Q1

REPORT INFORMATION
  Report Type: 
  Country: None (occurrence: None)
  Receive Date: 20070214
  Receipt Date: 20070205
  Transmission Date: 20070707
  Serious: Yes (Other)
  Sender: FDA-Public Use
  Company Number: BR-PFIZER INC-2007000343

PATIENT
  Sex: Female

DRUGS (7)
  1. ZOLOFT [Suspect]
     Indication: DEPRESSION
     Route: 048
     Dates: start: 20061218, end: 20070101
  2. OLCADIL [Concomitant]
  3. RIVOTRIL [Concomitant]
  4. ZANIDIP [Concomitant]
     Route: 048
  5. INDAPAMIDE [Concomitant]
     Route: 048
  6. GLUCOBAY [Concomitant]
     Route: 048
  7. GLIMEPIRIDE [Concomitant]
     Route: 048

REACTIONS (2)
  - LABYRINTHITIS [None]
  - RHINITIS [None]
